FAERS Safety Report 6510302-0 (Version None)
Quarter: 2009Q4

REPORT INFORMATION
  Report Type: 
  Country: None (occurrence: None)
  Receive Date: 20091222
  Receipt Date: 20090929
  Transmission Date: 20100525
  Serious: No
  Sender: FDA-Public Use
  Company Number: US-ASTRAZENECA-2009SE16329

PATIENT
  Age: 76 Year
  Sex: Female
  Weight: 81.6 kg

DRUGS (6)
  1. CRESTOR [Suspect]
     Indication: BLOOD CHOLESTEROL INCREASED
     Route: 048
     Dates: start: 20090928
  2. LASIX [Concomitant]
  3. POTASSIUM [Concomitant]
  4. BYSTOLIC [Concomitant]
  5. NORVASC [Concomitant]
  6. ALLOPURINOL [Concomitant]

REACTIONS (3)
  - ARTHRALGIA [None]
  - BONE PAIN [None]
  - GOUT [None]
